FAERS Safety Report 17128496 (Version 1)
Quarter: 2019Q4

REPORT INFORMATION
  Report Type: Report from Study
  Country: US (occurrence: US)
  Receive Date: 20191209
  Receipt Date: 20191209
  Transmission Date: 20200122
  Serious: Yes (Hospitalization, Other)
  Sender: FDA-Public Use
  Company Number: US-GILEAD-2019-0438225

PATIENT
  Age: 65 Year
  Sex: Male
  Weight: 105.22 kg

DRUGS (7)
  1. KETOCONAZOLE. [Concomitant]
     Active Substance: KETOCONAZOLE
  2. FUROSEMIDE. [Concomitant]
     Active Substance: FUROSEMIDE
  3. HYDROCODONE [Concomitant]
     Active Substance: HYDROCODONE
  4. ALDACTONE [Concomitant]
     Active Substance: SPIRONOLACTONE
  5. CLINDAMYCIN HCL [Concomitant]
     Active Substance: CLINDAMYCIN HYDROCHLORIDE
  6. SOFOSBUVIR W/VELPATASVIR [Suspect]
     Active Substance: SOFOSBUVIR\VELPATASVIR
     Indication: HEPATITIS C
     Dosage: 1 DOSAGE FORM, QD
     Route: 048
     Dates: start: 20190325, end: 20191007
  7. TAMSULOSIN [Concomitant]
     Active Substance: TAMSULOSIN

REACTIONS (13)
  - Atrial fibrillation [Unknown]
  - Skin wound [Not Recovered/Not Resolved]
  - Cholelithiasis [Unknown]
  - Treatment failure [Not Recovered/Not Resolved]
  - Fungal infection [Unknown]
  - Ammonia abnormal [Recovering/Resolving]
  - Thrombocytopenia [Not Recovered/Not Resolved]
  - Incarcerated umbilical hernia [Recovered/Resolved]
  - Breast pain [Unknown]
  - Ascites [Recovering/Resolving]
  - Weight increased [Recovered/Resolved]
  - Leukopenia [Not Recovered/Not Resolved]
  - Headache [Recovered/Resolved]

NARRATIVE: CASE EVENT DATE: 20190327
